FAERS Safety Report 9491332 (Version 1)
Quarter: 2013Q3

REPORT INFORMATION
  Report Type: Report from Study
  Country: CA (occurrence: CA)
  Receive Date: 20130830
  Receipt Date: 20130830
  Transmission Date: 20140515
  Serious: Yes (Life-Threatening, Hospitalization)
  Sender: FDA-Public Use
  Company Number: CA-JNJFOC-20130816718

PATIENT
  Age: 35 Year
  Sex: Male
  Weight: 83 kg

DRUGS (3)
  1. REMICADE [Suspect]
     Indication: COLITIS ULCERATIVE
     Route: 042
     Dates: start: 20120727
  2. IMURAN [Concomitant]
     Route: 065
  3. OXYNEO [Concomitant]
     Route: 065

REACTIONS (2)
  - Epiglottitis [Recovered/Resolved]
  - Drain placement [Recovered/Resolved]
